FAERS Safety Report 9925205 (Version 2)
Quarter: 2014Q1

REPORT INFORMATION
  Report Type: Spontaneous
  Country: JP (occurrence: JP)
  Receive Date: 20140226
  Receipt Date: 20140305
  Transmission Date: 20141002
  Serious: Yes (Hospitalization)
  Sender: FDA-Public Use
  Company Number: JP-009507513-1402JPN011637

PATIENT
  Sex: Female

DRUGS (1)
  1. REMERON [Suspect]
     Indication: DEPRESSION
     Dosage: DAILY DOSAGE UNKNOWN
     Route: 048

REACTIONS (2)
  - Abnormal behaviour [Unknown]
  - Suicidal ideation [Unknown]
